FAERS Safety Report 15245204 (Version 9)
Quarter: 2020Q1

REPORT INFORMATION
  Report Type: Spontaneous
  Country: US (occurrence: US)
  Receive Date: 20180806
  Receipt Date: 20200214
  Transmission Date: 20200409
  Serious: Yes (Other)
  Sender: FDA-Public Use
  Company Number: US-PFIZER INC-2018311320

PATIENT
  Age: 59 Year
  Sex: Male
  Weight: 93 kg

DRUGS (16)
  1. LYRICA [Suspect]
     Active Substance: PREGABALIN
     Dosage: 50 MG, 2X/DAY
     Route: 048
     Dates: start: 20191220
  2. LYRICA [Suspect]
     Active Substance: PREGABALIN
     Dosage: 50 MG, DAILY
     Route: 048
     Dates: start: 20190802
  3. VITAMIN C [Concomitant]
     Active Substance: ASCORBIC ACID
     Dosage: 2000 MG, DAILY (2 TABLET)
     Route: 048
  4. GARLIC. [Concomitant]
     Active Substance: GARLIC
     Dosage: 1000 MG, DAILY
     Route: 048
  5. LYRICA [Suspect]
     Active Substance: PREGABALIN
     Indication: NEUROPATHY PERIPHERAL
     Dosage: 1 DF, 2X/DAY (1 CAPSULE TWO TIMES A DAY)
     Route: 048
     Dates: start: 20170404
  6. CENTRUM SILVER [Concomitant]
     Active Substance: MINERALS\VITAMINS
     Dosage: 1 DF, DAILY (0.4MG-300MCG-250MCG; TAKE 1 TABLET DAILY)
     Route: 048
  7. MELOXICAM. [Concomitant]
     Active Substance: MELOXICAM
     Dosage: 15 MG, AS NEEDED (TAKE 1 TABLET BY ORAL ROUTE DAILY AS NEEDED)
     Route: 048
     Dates: start: 20190802
  8. VITAMIN B12 [Concomitant]
     Active Substance: CYANOCOBALAMIN
     Dosage: 500 UG, DAILY
     Route: 048
  9. VITAMIN D3 [Concomitant]
     Active Substance: CHOLECALCIFEROL
     Dosage: 2000 IU, DAILY
     Route: 048
  10. CHOLEST OFF NATURE MADE [Concomitant]
     Dosage: 450 MG, DAILY
     Route: 048
  11. VITAMIN E [Concomitant]
     Active Substance: .ALPHA.-TOCOPHEROL
     Dosage: 1000 IU, DAILY
     Route: 048
  12. LYRICA [Suspect]
     Active Substance: PREGABALIN
     Indication: NERVE INJURY
     Dosage: 50 MG, 3X/DAY
     Route: 048
     Dates: start: 2016
  13. VITAMIN B12 + FOLIC ACID [Concomitant]
     Active Substance: CYANOCOBALAMIN\FOLIC ACID
     Dosage: 1 DF, DAILY (500-400 MCG ORAL TABLET0
     Route: 048
  14. IBUPROFEN. [Concomitant]
     Active Substance: IBUPROFEN
     Indication: PAIN
     Dosage: UNK, AS NEEDED (LIQUID)
  15. FISH OIL [Concomitant]
     Active Substance: FISH OIL
     Dosage: 1000 MG, 2X/DAY (TAKE 2 CAPSULES BY ORAL ROUTE 2 TIMES A DAY)
     Route: 048
     Dates: start: 20181218
  16. IBU [Concomitant]
     Active Substance: IBUPROFEN
     Dosage: UNK (800 IN AM, 400 IN PM)

REACTIONS (9)
  - Skin infection [Unknown]
  - Hypersensitivity [Unknown]
  - Memory impairment [Unknown]
  - Vision blurred [Unknown]
  - Vertigo [Recovering/Resolving]
  - Staphylococcus test positive [Unknown]
  - Wound infection [Unknown]
  - Drug ineffective [Not Recovered/Not Resolved]
  - Depression [Unknown]

NARRATIVE: CASE EVENT DATE: 2016
